FAERS Safety Report 16325443 (Version 1)
Quarter: 2019Q2

REPORT INFORMATION
  Report Type: Report from Study
  Country: BD (occurrence: BD)
  Receive Date: 20190517
  Receipt Date: 20190517
  Transmission Date: 20190711
  Serious: Yes (Hospitalization)
  Sender: FDA-Public Use
  Company Number: BD-ASTRAZENECA-2019SE71954

PATIENT

DRUGS (1)
  1. QUETIAPINE. [Suspect]
     Active Substance: QUETIAPINE
     Route: 048

REACTIONS (3)
  - Overdose [Unknown]
  - Electrocardiogram QT prolonged [Unknown]
  - Toxicity to various agents [Unknown]
